FAERS Safety Report 4981713-X (Version None)
Quarter: 2006Q2

REPORT INFORMATION
  Report Type: 
  Country: None (occurrence: None)
  Receive Date: 20060420
  Receipt Date: 20060420
  Transmission Date: 20061013
  Serious: Yes (Other)
  Sender: FDA-Public Use
  Company Number: None

PATIENT
  Age: 62 Year
  Sex: Female
  Weight: 108.4097 kg

DRUGS (1)
  1. MORPHINE [Suspect]
     Indication: ANKLE FRACTURE
     Dosage: 4 MG IVP
     Route: 042

REACTIONS (4)
  - INFUSION SITE ERYTHEMA [None]
  - INFUSION SITE REACTION [None]
  - NAUSEA [None]
  - PALLOR [None]
